FAERS Safety Report 8221701-3 (Version None)
Quarter: 2012Q1

REPORT INFORMATION
  Report Type: 
  Country: None (occurrence: None)
  Receive Date: 20120316
  Receipt Date: 20110516
  Transmission Date: 20120608
  Serious: Yes (Other)
  Sender: FDA-Public Use
  Company Number: US-2012-10230

PATIENT
  Age: 73 Year
  Sex: Male

DRUGS (3)
  1. BORTEZOMIB [Suspect]
     Indication: STEM CELL TRANSPLANT
     Dosage: 2.5 MG MILLIGRAM(S), DAILY DOSE, INTRAVENOUS
     Route: 042
     Dates: start: 20110425, end: 20110425
  2. BUSULFAN [Suspect]
     Indication: MULTIPLE MYELOMA
     Dosage: 58 MG MILLIGRAM(S), DAILY DOSE, INTRAVENOUS 190 MG MILLIGRAM(S), DAILY DOSE, INTRAVENOUS
     Route: 042
     Dates: start: 20110421, end: 20110424
  3. BUSULFAN [Suspect]
     Indication: MULTIPLE MYELOMA
     Dosage: 58 MG MILLIGRAM(S), DAILY DOSE, INTRAVENOUS 190 MG MILLIGRAM(S), DAILY DOSE, INTRAVENOUS
     Route: 042
     Dates: start: 20110418, end: 20110418

REACTIONS (2)
  - STEM CELL TRANSPLANT [None]
  - DEEP VEIN THROMBOSIS [None]
